FAERS Safety Report 7016709-X (Version None)
Quarter: 2010Q3

REPORT INFORMATION
  Report Type: 
  Country: None (occurrence: None)
  Receive Date: 20100923
  Receipt Date: 20100910
  Transmission Date: 20110219
  Serious: Yes (Other)
  Sender: FDA-Public Use
  Company Number: 2010SP049090

PATIENT
  Age: 36 Year
  Sex: Female

DRUGS (2)
  1. DESLORATADINE [Suspect]
     Indication: RHINITIS ALLERGIC
     Dosage: 5 MG QD PO
     Route: 048
  2. CONTRACEPTIVE [Concomitant]

REACTIONS (1)
  - CYTOLYTIC HEPATITIS [None]
